FAERS Safety Report 11390129 (Version 1)
Quarter: 2015Q3

REPORT INFORMATION
  Report Type: Spontaneous
  Country: US (occurrence: None)
  Receive Date: 20150814
  Receipt Date: 20150814
  Transmission Date: 20151125
  Serious: Yes (Hospitalization)
  Sender: FDA-Public Use
  Company Number: None

PATIENT
  Age: 58 Year
  Sex: Male
  Weight: 135.2 kg

DRUGS (12)
  1. ASPIRIN. [Suspect]
     Active Substance: ASPIRIN
     Indication: CORONARY ARTERY DISEASE
     Dosage: CHRONIC
     Route: 048
  2. PROTONIX [Concomitant]
     Active Substance: PANTOPRAZOLE SODIUM
  3. KEFLEX [Concomitant]
     Active Substance: CEPHALEXIN
  4. VOLTAREN [Concomitant]
     Active Substance: DICLOFENAC SODIUM
  5. TYLENOL [Concomitant]
     Active Substance: ACETAMINOPHEN
  6. PRAVACHOL [Concomitant]
     Active Substance: PRAVASTATIN SODIUM
  7. RANEXA [Concomitant]
     Active Substance: RANOLAZINE
  8. ZESTORETIC [Concomitant]
     Active Substance: HYDROCHLOROTHIAZIDE\LISINOPRIL
  9. TOPROL XL [Concomitant]
     Active Substance: METOPROLOL SUCCINATE
  10. PLAVIX [Suspect]
     Active Substance: CLOPIDOGREL BISULFATE
     Indication: CORONARY ARTERY DISEASE
     Dosage: CHRONIC
     Route: 048
  11. ZETIA [Concomitant]
     Active Substance: EZETIMIBE
  12. NITROSTAT [Concomitant]
     Active Substance: NITROGLYCERIN

REACTIONS (2)
  - Haematemesis [None]
  - Gastritis [None]

NARRATIVE: CASE EVENT DATE: 20150210
